FAERS Safety Report 7245492-8 (Version None)
Quarter: 2011Q1

REPORT INFORMATION
  Report Type: 
  Country: None (occurrence: None)
  Receive Date: 20110126
  Receipt Date: 20110112
  Transmission Date: 20110831
  Serious: Yes (Other)
  Sender: FDA-Public Use
  Company Number: US-ELI_LILLY_AND_COMPANY-US201010005486

PATIENT
  Sex: Female
  Weight: 40.816 kg

DRUGS (17)
  1. DULCOLAX [Concomitant]
     Indication: CONSTIPATION
  2. PROTONIX [Concomitant]
     Dosage: 40 MG, DAILY (1/D)
     Route: 048
  3. CALCIUM 500+D3 [Concomitant]
     Dosage: 500 MG, 2/D
     Route: 048
  4. TYLENOL                                 /SCH/ [Concomitant]
     Dosage: 1000 MG, UNKNOWN
     Route: 048
  5. LOVENOX [Concomitant]
  6. OXYCODONE HCL AND ACETAMINOPHEN [Concomitant]
     Indication: PAIN
  7. LISINOPRIL [Concomitant]
     Indication: BLOOD PRESSURE
     Dosage: 20 MG, DAILY (1/D)
     Route: 048
  8. PROZAC [Concomitant]
     Dosage: 20 MG, DAILY (1/D)
     Route: 048
  9. ZOFRAN [Concomitant]
     Indication: NAUSEA
     Dosage: 8 MG, AS NEEDED
     Route: 048
  10. FORTEO [Suspect]
     Dosage: 20 UG, UNKNOWN
  11. OXYCONTIN [Concomitant]
     Indication: PAIN
     Dosage: 15 MG, AS NEEDED
     Route: 048
  12. SENOKOT [Concomitant]
     Dosage: 8.6 MG, AS NEEDED
     Route: 048
  13. ASA [Concomitant]
     Dosage: 81 MG, DAILY (1/D)
     Route: 048
  14. ATIVAN [Concomitant]
     Indication: NAUSEA
     Dosage: 0.5 MG, AS NEEDED
     Route: 048
  15. MULTI-VITAMINS [Concomitant]
     Dosage: UNK, DAILY (1/D)
     Route: 048
  16. PROCHLORPERAZINE [Concomitant]
     Indication: NAUSEA
     Dosage: 10 MG, AS NEEDED
     Route: 048
  17. GABAPENTIN [Concomitant]
     Dosage: 600 MG, EACH EVENING
     Route: 048

REACTIONS (3)
  - FRACTURED SACRUM [None]
  - SPINAL FRACTURE [None]
  - MULTIPLE MYELOMA [None]
